FAERS Safety Report 14571291 (Version 1)
Quarter: 2018Q1

REPORT INFORMATION
  Report Type: Report from Study
  Country: CA (occurrence: CA)
  Receive Date: 20180226
  Receipt Date: 20180226
  Transmission Date: 20180509
  Serious: Yes (Death, Other)
  Sender: FDA-Public Use
  Company Number: PHHY2017CA186092

PATIENT
  Age: 49 Year
  Sex: Male

DRUGS (5)
  1. AFINITOR [Suspect]
     Active Substance: EVEROLIMUS
     Indication: METASTATIC RENAL CELL CARCINOMA
     Dosage: 10 MG, QD
     Route: 048
     Dates: start: 20171210
  2. MORPHINE [Concomitant]
     Active Substance: MORPHINE
     Indication: PULMONARY PAIN
     Dosage: 12 MG, BID
     Route: 065
  3. DILAUDID [Concomitant]
     Active Substance: HYDROMORPHONE HYDROCHLORIDE
     Indication: PRODUCT USED FOR UNKNOWN INDICATION
     Dosage: 3 MG, PRN
     Route: 065
  4. MORPHINE [Concomitant]
     Active Substance: MORPHINE
     Indication: RENAL PAIN
     Dosage: 6 MG, UNK
     Route: 065
  5. DULCOLAX NOS [Concomitant]
     Active Substance: BISACODYL OR DOCUSATE SODIUM
     Indication: CONSTIPATION
     Dosage: UNK
     Route: 065

REACTIONS (8)
  - Death [Fatal]
  - Renal pain [Not Recovered/Not Resolved]
  - Dyspnoea exertional [Unknown]
  - Constipation [Unknown]
  - Pulmonary pain [Not Recovered/Not Resolved]
  - Metastases to central nervous system [Unknown]
  - Frequent bowel movements [Unknown]
  - Fatigue [Unknown]

NARRATIVE: CASE EVENT DATE: 201712
